FAERS Safety Report 13259822 (Version 2)
Quarter: 2017Q1

REPORT INFORMATION
  Report Type: Spontaneous
  Country: DE (occurrence: DE)
  Receive Date: 20170222
  Receipt Date: 20170306
  Transmission Date: 20170428
  Serious: Yes (Hospitalization)
  Sender: FDA-Public Use
  Company Number: DE-PFIZER INC-2017069247

PATIENT
  Age: 56 Year
  Sex: Female
  Weight: 65 kg

DRUGS (2)
  1. AMLODIPINE BESILATE DEXCEL [Suspect]
     Active Substance: AMLODIPINE BESYLATE
     Indication: HYPERTENSION
     Dosage: 10 MG, 1X/DAY (AT NIGHTS)
     Route: 048
     Dates: start: 20161220
  2. CANDESARTAN [Concomitant]
     Active Substance: CANDESARTAN
     Indication: HYPERTENSION
     Dosage: 16 MG, 1-0-0
     Route: 048

REACTIONS (5)
  - Loss of consciousness [Recovered/Resolved]
  - Micturition urgency [Recovered/Resolved]
  - Dehydration [Recovered/Resolved]
  - Syncope [Recovered/Resolved]
  - Palpitations [Recovered/Resolved]

NARRATIVE: CASE EVENT DATE: 20170203
